FAERS Safety Report 13074318 (Version 2)
Quarter: 2019Q3

REPORT INFORMATION
  Report Type: Spontaneous
  Country: FR (occurrence: FR)
  Receive Date: 20161230
  Receipt Date: 20190726
  Transmission Date: 20191004
  Serious: Yes (Other)
  Sender: FDA-Public Use
  Company Number: FR-BRISTOL-MYERS SQUIBB COMPANY-BMS-2016-109629

PATIENT
  Age: 46 Year
  Sex: Male

DRUGS (1)
  1. OPDIVO [Suspect]
     Active Substance: NIVOLUMAB
     Indication: SUPERFICIAL SPREADING MELANOMA STAGE UNSPECIFIED
     Dosage: UNK
     Route: 065

REACTIONS (2)
  - Radiation necrosis [Unknown]
  - Radiation skin injury [Unknown]
